FAERS Safety Report 9278539 (Version 2)
Quarter: 2013Q2

REPORT INFORMATION
  Report Type: Report from Study
  Country: US (occurrence: US)
  Receive Date: 20130508
  Receipt Date: 20130522
  Transmission Date: 20140414
  Serious: Yes (Hospitalization)
  Sender: FDA-Public Use
  Company Number: US-GLAXOSMITHKLINE-A1007720A

PATIENT
  Age: 41 Year
  Sex: Female
  Weight: 84 kg

DRUGS (35)
  1. BELIMUMAB [Suspect]
     Indication: SYSTEMIC LUPUS ERYTHEMATOSUS
     Dosage: 10MGK CYCLIC
     Route: 042
     Dates: start: 20121203
  2. PNEUMOCOCCAL VACCINE [Suspect]
     Indication: SYSTEMIC LUPUS ERYTHEMATOSUS
     Route: 042
     Dates: start: 20121105, end: 20121105
  3. TETANUS VACCINE [Suspect]
     Indication: SYSTEMIC LUPUS ERYTHEMATOSUS
     Route: 042
     Dates: start: 20121105, end: 20121105
  4. AZITHROMYCIN [Suspect]
     Indication: COUGH
  5. PLAQUENIL [Concomitant]
     Indication: SYSTEMIC LUPUS ERYTHEMATOSUS
     Dosage: 200MG PER DAY
     Route: 048
     Dates: start: 200105
  6. PREDNISONE [Concomitant]
     Indication: SYSTEMIC LUPUS ERYTHEMATOSUS
     Dosage: 5MG PER DAY
     Route: 048
     Dates: start: 200105
  7. METOPROLOL [Concomitant]
     Indication: LUPUS NEPHRITIS
     Dosage: 50MG TWICE PER DAY
     Route: 048
     Dates: start: 200809
  8. CRESTOR [Concomitant]
     Indication: HYPERCHOLESTEROLAEMIA
     Dosage: 10MG PER DAY
     Route: 048
     Dates: start: 201108
  9. CELEXA [Concomitant]
     Indication: DEPRESSION
     Dosage: 20MG PER DAY
     Route: 048
     Dates: start: 201003
  10. KLONOPIN [Concomitant]
     Indication: MUSCLE SPASMS
     Dosage: .5MG AS REQUIRED
     Route: 048
     Dates: start: 200109
  11. LOTENSIN [Concomitant]
     Indication: HYPERTENSION
     Dosage: 5MG PER DAY
     Dates: start: 201207
  12. TRIAMCINOLONE [Concomitant]
     Indication: ECZEMA
     Dates: start: 201201
  13. FERROUS SULFATE [Concomitant]
     Indication: VITAMIN B12 DEFICIENCY
     Dosage: 325MG THREE TIMES PER DAY
     Route: 048
     Dates: start: 200105
  14. VITAMIN D CALCIUM [Concomitant]
     Indication: OSTEOPOROSIS
     Route: 048
     Dates: start: 200507
  15. CHOLECALCIFEROL [Concomitant]
     Indication: VITAMIN SUPPLEMENTATION
     Dosage: 1000UNIT PER DAY
     Route: 048
     Dates: start: 200507
  16. BISACODYL [Concomitant]
     Indication: CONSTIPATION
     Dosage: 10MG AS REQUIRED
     Route: 048
     Dates: start: 20130109, end: 20130109
  17. CELLCEPT [Concomitant]
     Indication: SYSTEMIC LUPUS ERYTHEMATOSUS
     Dates: start: 20130110
  18. METOPROLOL [Concomitant]
     Indication: HYPERTENSION
     Dosage: 50MG TWICE PER DAY
     Route: 048
     Dates: start: 20130318
  19. PREDNISONE [Concomitant]
     Indication: SYSTEMIC LUPUS ERYTHEMATOSUS
     Route: 048
     Dates: start: 20130104
  20. ONDANSETRON [Concomitant]
     Indication: SYSTEMIC LUPUS ERYTHEMATOSUS
     Dosage: 4MG AS REQUIRED
     Route: 048
     Dates: start: 20130104, end: 20130109
  21. LORTAB [Concomitant]
     Indication: PAIN
     Dosage: 7.5MG AS REQUIRED
     Route: 048
     Dates: start: 20130106, end: 20130107
  22. ACETAMINOPHEN [Concomitant]
     Indication: PAIN
     Dosage: 650MG AS REQUIRED
     Route: 048
     Dates: start: 20130105, end: 20130110
  23. DOCUSATE SODIUM [Concomitant]
     Indication: CONSTIPATION
     Dosage: 100MG TWICE PER DAY
     Route: 048
     Dates: start: 20130104, end: 20130110
  24. ALBUTEROL [Concomitant]
     Indication: RESPIRATORY TRACT CONGESTION
     Dosage: 20MG SINGLE DOSE
     Route: 055
     Dates: start: 20130106, end: 20130106
  25. HYDRALAZINE [Concomitant]
     Indication: HYPERTENSION
     Dates: start: 20130105, end: 20130110
  26. CLONIDINE [Concomitant]
     Indication: HYPERTENSION
     Dosage: .1MG TWICE PER DAY
     Route: 048
     Dates: start: 20130106, end: 20130110
  27. EXTRA STRENGTH TYLENOL [Concomitant]
     Indication: HEADACHE
     Dosage: 500MG AS REQUIRED
     Route: 048
     Dates: start: 200105, end: 20130104
  28. MULTIVITAMIN [Concomitant]
     Indication: VITAMIN SUPPLEMENTATION
     Dosage: 1TAB PER DAY
     Route: 048
     Dates: start: 200105, end: 20130103
  29. SOLUMEDROL [Concomitant]
     Indication: SYSTEMIC LUPUS ERYTHEMATOSUS
     Dosage: 60MG TWICE PER DAY
     Route: 042
     Dates: start: 20130105, end: 20130110
  30. HEPARIN [Concomitant]
     Indication: THROMBOSIS PROPHYLAXIS
     Dosage: 500UNIT THREE TIMES PER DAY
     Route: 058
     Dates: start: 20130104, end: 20130107
  31. NORMAL SALINE [Concomitant]
     Indication: FLUID REPLACEMENT
     Dosage: 1000ML CONTINUOUS
     Route: 042
     Dates: start: 20130104, end: 20130109
  32. CALCIUM GLUCONATE [Concomitant]
     Indication: HYPERTENSION
     Dosage: 10ML AS REQUIRED
     Route: 042
     Dates: start: 20130104, end: 20130106
  33. DEXTROSE [Concomitant]
     Indication: HYPOGLYCAEMIA
     Dosage: 25G SINGLE DOSE
     Route: 042
     Dates: start: 20130106, end: 20130106
  34. POLYSORB HYDRATE [Concomitant]
     Indication: HYPOGLYCAEMIA
     Dosage: 30G PER DAY
     Route: 048
     Dates: start: 20130104, end: 20130106
  35. INFLUENZA VACCINE [Concomitant]
     Indication: ANTIVIRAL PROPHYLAXIS
     Dosage: .5ML SINGLE DOSE
     Route: 030
     Dates: start: 20130110, end: 20130110

REACTIONS (4)
  - Renal failure chronic [Not Recovered/Not Resolved]
  - Transaminases increased [Recovered/Resolved]
  - Hyperkalaemia [Recovered/Resolved]
  - Cardiac failure congestive [Unknown]
